FAERS Safety Report 5052769-3 (Version None)
Quarter: 2006Q3

REPORT INFORMATION
  Report Type: 
  Country: None (occurrence: None)
  Receive Date: 20060717
  Receipt Date: 20060707
  Transmission Date: 20061208
  Serious: Yes (Hospitalization)
  Sender: FDA-Public Use
  Company Number: CH-ROCHE-454504

PATIENT
  Age: 73 Year
  Sex: Female
  Weight: 80.5 kg

DRUGS (10)
  1. TORSEMIDE [Suspect]
     Indication: HYPERTENSIVE HEART DISEASE
     Dosage: INDICATION AS REPORTED: HYPERTENSIVE HEART DISEASE WITH (CONGESTIVE) HEART FAILURE.
     Route: 048
     Dates: start: 20060321, end: 20060330
  2. FOSITENS [Interacting]
     Indication: HYPERTENSIVE HEART DISEASE
     Dosage: INDICATION REPORTED AS HYPERTENSIVE HEART DISEASE WITH (CONGESTIVE) HEART FAILURE.
     Route: 048
     Dates: start: 20060316, end: 20060331
  3. ALDOZONE FORTE [Interacting]
     Indication: HYPERTENSIVE HEART DISEASE
     Dosage: INDICATION REPORTED AS HYPERTENSION HEART DISEASE WITH (CONGESTIVE) HEART FAILURE. STRENGTH REPORTE+
     Route: 048
     Dates: start: 20060316, end: 20060321
  4. NORVASC [Interacting]
     Indication: HYPERTENSIVE HEART DISEASE
     Dosage: INDICATION REPORTED AS HYPERTENSIVE HEART DISEASE WITH (CONGESTIVE) HEART FAILURE.
     Route: 048
     Dates: start: 20060316, end: 20060330
  5. NORVASC [Interacting]
     Dosage: DOSAGE REGIMEN WAS CHANGED TO EVERY OTHER DAY.
     Route: 048
     Dates: start: 20060330, end: 20060331
  6. COAPROVEL 150 MG/12.5 MG COMPRIMES [Interacting]
     Indication: HYPERTENSIVE HEART DISEASE
     Dosage: INDICATION REPORTED AS HYPERTENSIVE HEART DISEASE WITH (CONGESTIVE) HEART FAILURE. STRENGTH REPORTE+
     Route: 048
     Dates: start: 20060316, end: 20060330
  7. COAPROVEL 150 MG/12.5 MG COMPRIMES [Interacting]
     Dosage: DOSAGE REGIMEN WAS CHANGED TO EVERY OTHER DAY.
     Route: 048
     Dates: start: 20060330, end: 20060331
  8. MS CONTIN [Suspect]
     Route: 048
     Dates: start: 20060330, end: 20060331
  9. VIBRAMYCIN [Concomitant]
     Route: 048
     Dates: start: 20060316, end: 20060321
  10. ZINAT [Concomitant]
     Route: 048
     Dates: start: 20060321

REACTIONS (14)
  - AGITATION [None]
  - ANURIA [None]
  - ARTHRALGIA [None]
  - CONFUSIONAL STATE [None]
  - DEPRESSED LEVEL OF CONSCIOUSNESS [None]
  - DISORIENTATION [None]
  - DRUG INTERACTION [None]
  - DRUG TOXICITY [None]
  - HALLUCINATION, VISUAL [None]
  - MYOCLONUS [None]
  - PANCREATITIS [None]
  - RENAL FAILURE ACUTE [None]
  - SEPTIC SHOCK [None]
  - TACHYCARDIA [None]
